FAERS Safety Report 14044498 (Version 1)
Quarter: 2017Q4

REPORT INFORMATION
  Report Type: Spontaneous
  Country: MY (occurrence: MY)
  Receive Date: 20171004
  Receipt Date: 20171004
  Transmission Date: 20180321
  Serious: Yes (Hospitalization, Other)
  Sender: FDA-Public Use
  Company Number: MY-ALEMBIC PHARMACUETICALS LIMITED-2017SCAL000785

PATIENT

DRUGS (2)
  1. LITHIUM CARBONATE. [Suspect]
     Active Substance: LITHIUM CARBONATE
     Indication: BIPOLAR I DISORDER
     Dosage: UNK
  2. HALOPERIDOL. [Concomitant]
     Active Substance: HALOPERIDOL
     Indication: BIPOLAR I DISORDER
     Dosage: UNK

REACTIONS (9)
  - Delirium [Unknown]
  - Disorientation [Unknown]
  - Acute kidney injury [Unknown]
  - Abscess limb [Unknown]
  - Tremor [Recovered/Resolved]
  - Anxiety [Unknown]
  - Antipsychotic drug level increased [Recovering/Resolving]
  - Toxicity to various agents [Unknown]
  - Speech disorder [Unknown]
